FAERS Safety Report 14747551 (Version 6)
Quarter: 2018Q3

REPORT INFORMATION
  Report Type: Report from Study
  Country: US (occurrence: US)
  Receive Date: 20180411
  Receipt Date: 20180918
  Transmission Date: 20181010
  Serious: Yes (Hospitalization, Other)
  Sender: FDA-Public Use
  Company Number: US-ACTELION-A-US2015-120638

PATIENT
  Age: 67 Year
  Sex: Female
  Weight: 87.75 kg

DRUGS (12)
  1. OPSUMIT [Suspect]
     Active Substance: MACITENTAN
     Indication: PULMONARY ARTERIAL HYPERTENSION
     Dosage: 10 MG, QD
     Route: 048
     Dates: start: 20150512
  2. VELETRI [Suspect]
     Active Substance: EPOPROSTENOL
     Dosage: UNK
     Route: 042
  3. ADEMPAS [Concomitant]
     Active Substance: RIOCIGUAT
  4. VELETRI [Suspect]
     Active Substance: EPOPROSTENOL
     Indication: PULMONARY ARTERIAL HYPERTENSION
     Dosage: 20 NG/KG, PER MIN
     Route: 042
  5. VELETRI [Suspect]
     Active Substance: EPOPROSTENOL
     Dosage: 4 NG/KG, PER MIN
     Route: 042
     Dates: start: 20150626
  6. VELETRI [Suspect]
     Active Substance: EPOPROSTENOL
     Dosage: 14 NG/KG, PER MIN
     Route: 042
  7. OXYGEN. [Concomitant]
     Active Substance: OXYGEN
  8. OPSUMIT [Suspect]
     Active Substance: MACITENTAN
     Dosage: 10 MG. QD
     Route: 048
     Dates: start: 20150512
  9. OPSUMIT [Suspect]
     Active Substance: MACITENTAN
     Dosage: 10 MG, QD
     Route: 048
  10. TYVASO [Suspect]
     Active Substance: TREPROSTINIL
     Indication: PULMONARY ARTERIAL HYPERTENSION
     Dosage: 18?54 MCG, 3?9 X/ADAY
     Route: 055
     Dates: start: 20150330
  11. ADCIRCA [Concomitant]
     Active Substance: TADALAFIL
  12. OFEV [Concomitant]
     Active Substance: NINTEDANIB

REACTIONS (40)
  - Blood sodium increased [Unknown]
  - Dyspnoea exertional [Unknown]
  - Ear discomfort [Unknown]
  - Productive cough [Unknown]
  - Heart rate increased [Unknown]
  - Fatigue [Unknown]
  - Catheter site pruritus [Unknown]
  - Back pain [Unknown]
  - Musculoskeletal pain [Unknown]
  - Exercise tolerance decreased [Unknown]
  - Device occlusion [Recovered/Resolved]
  - Pneumonia [Unknown]
  - Skin lesion [Unknown]
  - Gait disturbance [Unknown]
  - Dyspepsia [Unknown]
  - Weight increased [Unknown]
  - Hernia [Unknown]
  - Gastrointestinal infection [Unknown]
  - Rash generalised [Unknown]
  - Pain in jaw [Unknown]
  - Pain [Unknown]
  - Tachypnoea [Unknown]
  - Device alarm issue [Recovered/Resolved]
  - Asthenia [Unknown]
  - Headache [Unknown]
  - Deafness [Unknown]
  - Oedema peripheral [Unknown]
  - Epistaxis [Unknown]
  - Sinusitis [Unknown]
  - Abdominal pain [Unknown]
  - Diarrhoea [Unknown]
  - Flushing [Unknown]
  - Dyspnoea [Unknown]
  - Dizziness [Unknown]
  - Blood pressure systolic decreased [Unknown]
  - Catheter site erythema [Unknown]
  - Ear disorder [Unknown]
  - Tremor [Unknown]
  - Abdominal distension [Unknown]
  - Ear congestion [Unknown]

NARRATIVE: CASE EVENT DATE: 20170821
